FAERS Safety Report 8904465 (Version 1)
Quarter: 2012Q4

REPORT INFORMATION
  Report Type: 
  Country: US (occurrence: US)
  Receive Date: 20121110
  Receipt Date: 20121110
  Transmission Date: 20130627
  Serious: No
  Sender: FDA-Public Use
  Company Number: US-009507513-1211USA003318

PATIENT
  Age: 51 Year
  Sex: Female
  Weight: 81.63 kg

DRUGS (11)
  1. VICTRELIS [Suspect]
     Dosage: 4 DF, tid every 7 to 9 hours
     Route: 048
  2. PEGASYS [Suspect]
     Dosage: Proclick
  3. ZANAFLEX [Concomitant]
     Dosage: 2 mg, UNK
  4. AMBIEN [Concomitant]
     Dosage: 5 mg, UNK
  5. BUSPAR [Concomitant]
     Dosage: 30 mg, UNK
  6. VENTOLIN HFA [Concomitant]
     Dosage: aerosol
  7. ACIPHEX [Concomitant]
     Dosage: 20 mg, UNK
  8. EPINEPHRINE [Concomitant]
  9. TRAZODONE HYDROCHLORIDE [Concomitant]
     Dosage: 150 mg, UNK
  10. ZANTAC [Concomitant]
     Dosage: 75 mg, UNK
  11. LORTAB [Concomitant]
     Dosage: 5-500 milligrams

REACTIONS (10)
  - White blood cell count decreased [Unknown]
  - Headache [Unknown]
  - Neck pain [Unknown]
  - Pain [Unknown]
  - Influenza like illness [Unknown]
  - Vomiting [Unknown]
  - Red blood cell count decreased [Unknown]
  - Decreased appetite [Unknown]
  - Nausea [Unknown]
  - Drug dose omission [Unknown]
